FAERS Safety Report 8676668 (Version 2)
Quarter: 2012Q4

REPORT INFORMATION
  Report Type: 
  Country: US (occurrence: US)
  Receive Date: 20120723
  Receipt Date: 20120831
  Transmission Date: 20130627
  Serious: Yes (Other)
  Sender: FDA-Public Use
  Company Number: US-BIOGENIDEC-2012BI025030

PATIENT
  Age: 55 Year
  Sex: Female

DRUGS (3)
  1. AVONEX [Suspect]
     Indication: MULTIPLE SCLEROSIS
     Route: 030
     Dates: start: 19991201, end: 200308
  2. AVONEX [Suspect]
     Indication: MULTIPLE SCLEROSIS
     Route: 030
     Dates: start: 200308, end: 20060703
  3. AVONEX [Suspect]
     Indication: MULTIPLE SCLEROSIS
     Route: 030
     Dates: start: 20060801

REACTIONS (14)
  - Hepatic cirrhosis [Unknown]
  - Hepatic steatosis [Unknown]
  - Barrett^s oesophagus [Not Recovered/Not Resolved]
  - Liver disorder [Unknown]
  - Fall [Recovered/Resolved]
  - Meniscus injury [Recovered/Resolved]
  - Gastrointestinal disorder [Unknown]
  - Cartilage injury [Recovered/Resolved]
  - Multiple sclerosis [Not Recovered/Not Resolved]
  - Irritability [Unknown]
  - Myalgia [Not Recovered/Not Resolved]
  - Arthralgia [Not Recovered/Not Resolved]
  - Muscular weakness [Not Recovered/Not Resolved]
  - Headache [Recovered/Resolved]
